FAERS Safety Report 11930922 (Version 1)
Quarter: 2016Q1

REPORT INFORMATION
  Report Type: Spontaneous
  Country: US (occurrence: US)
  Receive Date: 20160120
  Receipt Date: 20160120
  Transmission Date: 20160526
  Serious: No
  Sender: FDA-Public Use
  Company Number: US-INCYTE CORPORATION-2015IN004083

PATIENT
  Sex: Male

DRUGS (9)
  1. OMEPRAZOLE. [Concomitant]
     Active Substance: OMEPRAZOLE
  2. ARANESP [Concomitant]
     Active Substance: DARBEPOETIN ALFA
  3. GLYBURIDE/METFORMIN [Concomitant]
     Active Substance: GLYBURIDE\METFORMIN
  4. JAKAFI [Suspect]
     Active Substance: RUXOLITINIB
     Dosage: 20 MG, QD
     Route: 048
     Dates: start: 20150305
  5. ONDANSETRON [Concomitant]
     Active Substance: ONDANSETRON
  6. BRIMONIDINE [Concomitant]
     Active Substance: BRIMONIDINE TARTRATE
  7. TAMSULOSIN [Concomitant]
     Active Substance: TAMSULOSIN
  8. TIMOLOL MALEATE. [Concomitant]
     Active Substance: TIMOLOL MALEATE
  9. VITAMIN D                          /00107901/ [Concomitant]
     Active Substance: ERGOCALCIFEROL

REACTIONS (2)
  - Stomatitis [Unknown]
  - Nausea [Unknown]
